FAERS Safety Report 9412571 (Version 2)
Quarter: 2013Q3

REPORT INFORMATION
  Report Type: Spontaneous
  Country: JP (occurrence: JP)
  Receive Date: 20130722
  Receipt Date: 20130802
  Transmission Date: 20140515
  Serious: Yes (Other)
  Sender: FDA-Public Use
  Company Number: JP-JHP PHARMACEUTICALS, LLC-JHP201300471

PATIENT
  Age: 68 Year
  Sex: Female

DRUGS (6)
  1. DANTRIUM [Suspect]
     Indication: NEUROLEPTIC MALIGNANT SYNDROME
     Dosage: 160 MG, DAILY
     Route: 041
     Dates: start: 20130709, end: 20130710
  2. DANTRIUM [Suspect]
     Dosage: 240 MG, DAILY
     Route: 041
     Dates: start: 20130711, end: 20130711
  3. MYONAL [Concomitant]
     Indication: MEIGE^S SYNDROME
     Dosage: UNK
     Route: 048
  4. DEPAS [Concomitant]
     Indication: MEIGE^S SYNDROME
     Dosage: UNK
     Route: 048
     Dates: end: 20130706
  5. ARTANE [Concomitant]
     Indication: MEIGE^S SYNDROME
     Dosage: UNK
     Route: 048
     Dates: end: 20130706
  6. TRYPTANOL [Concomitant]
     Indication: MEIGE^S SYNDROME
     Dosage: UNK
     Dates: end: 20130706

REACTIONS (3)
  - Overdose [Recovered/Resolved]
  - Blood creatine phosphokinase increased [Recovering/Resolving]
  - Hypotonia [Recovering/Resolving]
